FAERS Safety Report 22532423 (Version 1)
Quarter: 2023Q2

REPORT INFORMATION
  Report Type: Spontaneous
  Country: CZ (occurrence: CZ)
  Receive Date: 20230607
  Receipt Date: 20230607
  Transmission Date: 20230722
  Serious: Yes (Other)
  Sender: FDA-Public Use
  Company Number: None

PATIENT
  Age: 36 Year
  Sex: Female
  Weight: 80 kg

DRUGS (1)
  1. AZELASTINE [Suspect]
     Active Substance: AZELASTINE
     Indication: Nasal congestion
     Dosage: 1 DOSAGE FORM(1 TOTAL)
     Route: 045
     Dates: start: 20230511, end: 20230511

REACTIONS (3)
  - Sneezing [Recovered/Resolved]
  - Nasal discomfort [Recovered/Resolved]
  - Nasal pruritus [Recovered/Resolved]

NARRATIVE: CASE EVENT DATE: 20230511
